FAERS Safety Report 4589173-8 (Version None)
Quarter: 2005Q1

REPORT INFORMATION
  Report Type: 
  Country: None (occurrence: None)
  Receive Date: 20050215
  Receipt Date: 20050215
  Transmission Date: 20050727
  Serious: Yes (Other)
  Sender: FDA-Public Use
  Company Number: None

PATIENT
  Age: 31 Year
  Sex: Male
  Weight: 102.5129 kg

DRUGS (1)
  1. TOPAMAX [Suspect]
     Indication: BIPOLAR DISORDER
     Dosage: 100 MG 2X A DAY ORAL
     Route: 048
     Dates: start: 20041127, end: 20050114

REACTIONS (3)
  - GINGIVAL BLEEDING [None]
  - HAEMORRHAGE [None]
  - THROMBOSIS [None]
